FAERS Safety Report 17444189 (Version 1)
Quarter: 2020Q1

REPORT INFORMATION
  Report Type: Report from Study
  Country: CA (occurrence: CA)
  Receive Date: 20200221
  Receipt Date: 20200221
  Transmission Date: 20200409
  Serious: Yes (Other)
  Sender: FDA-Public Use
  Company Number: CA-GLAXOSMITHKLINE-CA2019AMR217104

PATIENT
  Sex: Female

DRUGS (2)
  1. MEPOLIZUMAB [Suspect]
     Active Substance: MEPOLIZUMAB
     Dosage: 100 MG, Z(MONTHLY)
     Route: 042
  2. MEPOLIZUMAB [Suspect]
     Active Substance: MEPOLIZUMAB
     Indication: ASTHMA
     Dosage: 100 MG, Z(MONTHLY)
     Route: 042
     Dates: start: 20190611

REACTIONS (8)
  - Arthralgia [Unknown]
  - Choking sensation [Unknown]
  - Sinusitis [Unknown]
  - Arterial stenosis [Unknown]
  - Pain in extremity [Unknown]
  - Dyspnoea [Unknown]
  - Myalgia [Unknown]
  - Gait disturbance [Unknown]
